FAERS Safety Report 8912929 (Version 2)
Quarter: 2013Q1

REPORT INFORMATION
  Report Type: Spontaneous
  Country: BE (occurrence: BE)
  Receive Date: 20121116
  Receipt Date: 20130319
  Transmission Date: 20140127
  Serious: Yes (Life-Threatening, Hospitalization, Other)
  Sender: FDA-Public Use
  Company Number: BE-VIIV HEALTHCARE LIMITED-B0841913A

PATIENT
  Age: 47 Year
  Sex: Male
  Weight: 100 kg

DRUGS (8)
  1. EPIVIR [Suspect]
     Indication: HIV INFECTION
     Dosage: 300MG PER DAY
     Route: 065
     Dates: start: 20120109, end: 20121210
  2. COMBIVIR [Suspect]
     Indication: PRODUCT USED FOR UNKNOWN INDICATION
     Route: 065
     Dates: start: 20110123, end: 20111221
  3. KIVEXA [Suspect]
     Indication: PRODUCT USED FOR UNKNOWN INDICATION
     Route: 065
     Dates: start: 20100809, end: 20100823
  4. ISENTRESS [Concomitant]
     Indication: HIV INFECTION
     Dosage: 400MG TWICE PER DAY
     Route: 065
     Dates: start: 20110123, end: 20121210
  5. INTELENCE [Concomitant]
     Indication: HIV INFECTION
     Dosage: 200MG TWICE PER DAY
     Route: 065
     Dates: start: 20120109, end: 20121210
  6. RITUXIMAB [Concomitant]
     Dates: start: 20120116, end: 20120208
  7. REYATAZ [Concomitant]
     Dosage: 300MG PER DAY
     Dates: start: 20100809, end: 20100823
  8. NORVIR [Concomitant]
     Dosage: 100MG PER DAY
     Dates: start: 20100809, end: 20100823

REACTIONS (5)
  - Haemolytic anaemia [Recovered/Resolved]
  - Virologic failure [Recovered/Resolved]
  - Pyrexia [Recovered/Resolved]
  - Rash [Recovered/Resolved]
  - Drug ineffective [Not Recovered/Not Resolved]
